FAERS Safety Report 9990367 (Version 1)
Quarter: 2014Q1

REPORT INFORMATION
  Report Type: Report from Study
  Country: US (occurrence: US)
  Receive Date: 20140310
  Receipt Date: 20140310
  Transmission Date: 20141002
  Serious: No
  Sender: FDA-Public Use
  Company Number: US-ABBVIE-13P-163-1133745-00

PATIENT
  Age: 47 Year
  Sex: Female

DRUGS (10)
  1. HUMIRA [Suspect]
     Indication: CROHN^S DISEASE
     Dates: start: 20130715, end: 20130715
  2. HUMIRA [Suspect]
     Dates: start: 20130729, end: 20130729
  3. HUMIRA [Suspect]
     Dates: start: 20130812, end: 20130812
  4. HUMIRA [Suspect]
  5. AXID [Concomitant]
     Indication: GASTROOESOPHAGEAL REFLUX DISEASE
  6. COUMADIN [Concomitant]
     Indication: THROMBOSIS
  7. EFFEXOR [Concomitant]
     Indication: DEPRESSION
  8. IMITREX [Concomitant]
     Indication: MIGRAINE
     Dosage: PILLS AND INJECTIONS
  9. NASACORT [Concomitant]
     Indication: HYPERSENSITIVITY
     Dosage: NASAL SPRAY EACH NOSTRIL
  10. FOLTX [Concomitant]
     Indication: BLOOD HOMOCYSTEINE
     Dosage: PILL

REACTIONS (1)
  - Injection site erythema [Not Recovered/Not Resolved]
